FAERS Safety Report 8415394-X (Version None)
Quarter: 2012Q2

REPORT INFORMATION
  Report Type: 
  Country: None (occurrence: None)
  Receive Date: 20120606
  Receipt Date: 20120601
  Transmission Date: 20120825
  Serious: No
  Sender: FDA-Public Use
  Company Number: PHEH2012US011375

PATIENT
  Age: 49 Year
  Sex: Male

DRUGS (3)
  1. LEVAQUIN [Suspect]
  2. CRESTOR [Concomitant]
  3. TASIGNA [Suspect]
     Indication: CHRONIC MYELOID LEUKAEMIA
     Dosage: 300 MG, BID
     Route: 048
     Dates: start: 20120121

REACTIONS (1)
  - AMNESIA [None]
